FAERS Safety Report 8376133-4 (Version None)
Quarter: 2012Q2

REPORT INFORMATION
  Report Type: 
  Country: None (occurrence: None)
  Receive Date: 20120522
  Receipt Date: 20120518
  Transmission Date: 20120825
  Serious: Yes (Other)
  Sender: FDA-Public Use
  Company Number: PHHY2012NL043055

PATIENT
  Sex: Male

DRUGS (3)
  1. ZOMETA [Suspect]
     Indication: PROSTATE CANCER
     Dosage: 4 MG/100 ML, EVERY 28 DAYS
     Dates: start: 20110301
  2. ZOMETA [Suspect]
     Dosage: 4 MG/100 ML, EVERY 28 DAYS
     Dates: start: 20120327
  3. ZOMETA [Suspect]
     Dosage: 4 MG/100 ML, EVERY 28 DAYS
     Dates: start: 20120424

REACTIONS (1)
  - TERMINAL STATE [None]
